FAERS Safety Report 8299121-5 (Version None)
Quarter: 2012Q2

REPORT INFORMATION
  Report Type: 
  Country: None (occurrence: None)
  Receive Date: 20120419
  Receipt Date: 20120410
  Transmission Date: 20120825
  Serious: Yes (Other)
  Sender: FDA-Public Use
  Company Number: US-ROCHE-784221

PATIENT
  Sex: Female
  Weight: 81.72 kg

DRUGS (4)
  1. ACCUTANE [Suspect]
     Indication: ACNE
     Route: 065
     Dates: start: 19910201, end: 19910401
  2. CYCLOCORT [Concomitant]
  3. ACCUTANE [Suspect]
     Route: 065
     Dates: start: 19940201, end: 19940501
  4. BACTRIM [Concomitant]

REACTIONS (5)
  - STRESS [None]
  - MUSCLE SPASMS [None]
  - DEPRESSION [None]
  - COLITIS ULCERATIVE [None]
  - INFLAMMATORY BOWEL DISEASE [None]
